FAERS Safety Report 12781578 (Version 1)
Quarter: 2016Q3

REPORT INFORMATION
  Report Type: Spontaneous
  Country: US (occurrence: US)
  Receive Date: 20160926
  Receipt Date: 20160926
  Transmission Date: 20161109
  Serious: No
  Sender: FDA-Public Use
  Company Number: US-ALLERGAN-1647884

PATIENT
  Age: 64 Year
  Sex: Female

DRUGS (2)
  1. CARAFATE [Suspect]
     Active Substance: SUCRALFATE
     Indication: ABDOMINAL PAIN UPPER
     Dosage: 1 TSP QID
     Route: 048
  2. CARAFATE [Suspect]
     Active Substance: SUCRALFATE
     Indication: GASTRITIS
     Dosage: 2 TSP, QID
     Route: 048
     Dates: start: 20150925

REACTIONS (6)
  - Insomnia [Unknown]
  - Product substitution issue [None]
  - Product physical consistency issue [None]
  - Pain [Unknown]
  - Abdominal pain upper [Unknown]
  - Drug ineffective [Unknown]

NARRATIVE: CASE EVENT DATE: 20150925
